FAERS Safety Report 8131069-9 (Version None)
Quarter: 2012Q1

REPORT INFORMATION
  Report Type: 
  Country: None (occurrence: None)
  Receive Date: 20120209
  Receipt Date: 20120209
  Transmission Date: 20120608
  Serious: Yes (Life-Threatening)
  Sender: FDA-Public Use
  Company Number: None

PATIENT
  Age: 40 Year
  Sex: Female

DRUGS (2)
  1. METOLAZONE [Suspect]
     Indication: FLUID RETENTION
  2. LASIX [Suspect]

REACTIONS (2)
  - HYPONATRAEMIA [None]
  - COMA [None]
